FAERS Safety Report 5691783-1 (Version None)
Quarter: 2008Q2

REPORT INFORMATION
  Report Type: 
  Country: None (occurrence: None)
  Receive Date: 20080402
  Receipt Date: 20080327
  Transmission Date: 20081010
  Serious: Yes (Other)
  Sender: FDA-Public Use
  Company Number: DE-BRISTOL-MYERS SQUIBB COMPANY-14034607

PATIENT
  Age: 49 Year
  Sex: Female
  Weight: 52 kg

DRUGS (6)
  1. REYATAZ [Suspect]
     Indication: HIV INFECTION
     Dosage: PREVIOUSLY TAKEN FROM 28-AUG-2006 TO 24-FEB-2007.
     Route: 048
     Dates: start: 20071002, end: 20071026
  2. ZYPREXA [Suspect]
     Indication: CYCLOTHYMIC DISORDER
     Dosage: FORMULATION = 10 VELOTABS
     Route: 048
     Dates: start: 20060101
  3. TRUVADA [Concomitant]
     Indication: HIV INFECTION
     Dosage: DOSAGE FORM = TABLET
     Route: 048
     Dates: start: 20071004, end: 20080301
  4. NORVIR [Concomitant]
     Indication: HIV INFECTION
     Route: 048
     Dates: start: 20070601
  5. CIPRALEX [Concomitant]
     Route: 048
     Dates: start: 20070101
  6. QUILONUM [Concomitant]
     Indication: CYCLOTHYMIC DISORDER
     Dosage: 1 DOSAGE FORM = 1 1/2 TABLET
     Route: 048

REACTIONS (1)
  - ELECTROCARDIOGRAM QT PROLONGED [None]
